FAERS Safety Report 23223032 (Version 9)
Quarter: 2025Q3

REPORT INFORMATION
  Report Type: Spontaneous
  Country: JP (occurrence: JP)
  Receive Date: 20231123
  Receipt Date: 20250803
  Transmission Date: 20251021
  Serious: Yes (Death, Life-Threatening, Other)
  Sender: ALEXION PHARMACEUTICALS
  Company Number: 2023A262046

PATIENT
  Age: 80 Year
  Sex: Male
  Weight: 54 kg

DRUGS (15)
  1. ANDEXXA [Suspect]
     Active Substance: ANDEXANET ALFA
     Indication: Cerebral haemorrhage
     Dates: start: 20230614, end: 20230614
  2. XARELTO [Concomitant]
     Active Substance: RIVAROXABAN
     Indication: Atrial fibrillation
  3. XARELTO [Concomitant]
     Active Substance: RIVAROXABAN
     Indication: Atrial fibrillation
  4. XARELTO [Concomitant]
     Active Substance: RIVAROXABAN
  5. OMEPRAZOLE [Concomitant]
     Active Substance: OMEPRAZOLE
     Dates: start: 20230614, end: 20230614
  6. ATROPINE [Concomitant]
     Active Substance: ATROPINE
     Dosage: 1 IU
     Dates: start: 20230614, end: 20230614
  7. FENTANYL [Concomitant]
     Active Substance: FENTANYL
     Dates: start: 20230614, end: 20230626
  8. FENTANYL [Concomitant]
     Active Substance: FENTANYL
  9. MILLISROL [Concomitant]
     Dates: start: 20230615, end: 20230618
  10. DORMICUM [Concomitant]
     Dates: start: 20230615, end: 20230624
  11. ALPROSTADIL ALFADEX [Concomitant]
     Active Substance: ALPROSTADIL ALFADEX
     Dates: start: 20230615, end: 20230617
  12. NEUART [Concomitant]
     Active Substance: ANTITHROMBIN III HUMAN
     Dosage: 1500 IU, FREQUENCY: UNK
     Dates: start: 20230616, end: 20230616
  13. DOPAMINE [Concomitant]
     Active Substance: DOPAMINE HYDROCHLORIDE
  14. DOPAMINE [Concomitant]
     Active Substance: DOPAMINE HYDROCHLORIDE
  15. Omepral injection 20 [Concomitant]
     Dates: start: 20230614, end: 20230614

REACTIONS (4)
  - Cardiac failure congestive [Fatal]
  - Acute myocardial infarction [Fatal]
  - Ventricular fibrillation [Recovered/Resolved]
  - Seizure [Recovering/Resolving]

NARRATIVE: CASE EVENT DATE: 20230614
